FAERS Safety Report 17464785 (Version 1)
Quarter: 2020Q1

REPORT INFORMATION
  Report Type: Spontaneous
  Country: US (occurrence: US)
  Receive Date: 20200226
  Receipt Date: 20200226
  Transmission Date: 20200409
  Serious: Yes (Other)
  Sender: FDA-Public Use
  Company Number: US-PFIZER INC-2020084049

PATIENT
  Age: 61 Year
  Sex: Female

DRUGS (1)
  1. LYRICA [Suspect]
     Active Substance: PREGABALIN
     Dosage: UNK

REACTIONS (7)
  - Nausea [Unknown]
  - Hypoaesthesia [Unknown]
  - Malaise [Unknown]
  - Vomiting [Unknown]
  - Peripheral swelling [Unknown]
  - Loss of consciousness [Unknown]
  - Gastroenteritis viral [Unknown]
